FAERS Safety Report 6795128-5 (Version None)
Quarter: 2010Q2

REPORT INFORMATION
  Report Type: 
  Country: None (occurrence: None)
  Receive Date: 20100625
  Receipt Date: 20100625
  Transmission Date: 20101027
  Serious: Yes (Hospitalization, Other)
  Sender: FDA-Public Use
  Company Number: PHHO2009FR12128

PATIENT
  Sex: Female
  Weight: 74 kg

DRUGS (2)
  1. AFINITOR [Suspect]
     Indication: PANCREATIC NEUROENDOCRINE TUMOUR
     Dosage: DOUBLE BLIND
     Dates: start: 20090513
  2. OXYGEN [Concomitant]
     Dosage: 1-2 L/MIN

REACTIONS (5)
  - COUGH [None]
  - DYSPNOEA [None]
  - LUNG DISORDER [None]
  - LYMPHOPENIA [None]
  - PYREXIA [None]
